FAERS Safety Report 6639760-8 (Version None)
Quarter: 2010Q1

REPORT INFORMATION
  Report Type: 
  Country: None (occurrence: None)
  Receive Date: 20100318
  Receipt Date: 20100310
  Transmission Date: 20100710
  Serious: Yes (Hospitalization, Other)
  Sender: FDA-Public Use
  Company Number: PHHY2010JP02105

PATIENT
  Age: 88 Year
  Sex: Female

DRUGS (4)
  1. DIOVAN HCT [Suspect]
     Indication: HYPERTENSION
     Dosage: 1 DF DAILY
     Route: 048
     Dates: start: 20091217, end: 20100105
  2. ARICEPT [Concomitant]
     Dosage: 5 MG, UNK
     Route: 048
     Dates: start: 20071001
  3. INFREE S [Concomitant]
     Dosage: 400 MG, UNK
     Route: 048
     Dates: start: 20020201
  4. NITOROL [Concomitant]
     Dosage: 10 MG, UNK
     Route: 048
     Dates: start: 19980401

REACTIONS (5)
  - ASTHENIA [None]
  - BLOOD URIC ACID INCREASED [None]
  - FALL [None]
  - FEMUR FRACTURE [None]
  - HEPATIC FUNCTION ABNORMAL [None]
